FAERS Safety Report 18218083 (Version 1)
Quarter: 2020Q3

REPORT INFORMATION
  Report Type: Spontaneous
  Country: US (occurrence: US)
  Receive Date: 20200901
  Receipt Date: 20200901
  Transmission Date: 20201103
  Serious: No
  Sender: FDA-Public Use
  Company Number: US-MYLANLABS-2020M1072955

PATIENT
  Age: 64 Year
  Sex: Male

DRUGS (2)
  1. ALBUTEROL                          /00139501/ [Concomitant]
     Active Substance: ALBUTEROL
     Dosage: UNK
  2. WIXELA INHUB [Suspect]
     Active Substance: FLUTICASONE PROPIONATE\SALMETEROL XINAFOATE
     Indication: CHRONIC OBSTRUCTIVE PULMONARY DISEASE
     Dosage: 250/50 MCG TWO DOSES DAILY
     Route: 055
     Dates: start: 202008

REACTIONS (2)
  - Drug ineffective [Unknown]
  - Product quality issue [Unknown]

NARRATIVE: CASE EVENT DATE: 202008
